FAERS Safety Report 13870896 (Version 1)
Quarter: 2017Q3

REPORT INFORMATION
  Report Type: Spontaneous
  Country: US (occurrence: None)
  Receive Date: 20170811
  Receipt Date: 20170811
  Transmission Date: 20171127
  Serious: Yes (Hospitalization)
  Sender: FDA-Public Use
  Company Number: None

PATIENT
  Age: 63 Year
  Sex: Female

DRUGS (13)
  1. NEULASTA [Suspect]
     Active Substance: PEGFILGRASTIM
     Indication: DIFFUSE LARGE B-CELL LYMPHOMA
     Route: 058
     Dates: start: 20170331
  2. ACYCLOVIR. [Concomitant]
     Active Substance: ACYCLOVIR
  3. THEOPHYLLINE [Concomitant]
     Active Substance: THEOPHYLLINE ANHYDROUS
  4. VISODIN [Concomitant]
  5. STIOLOTO [Concomitant]
  6. NYSTATIN. [Concomitant]
     Active Substance: NYSTATIN
  7. PROTONIX [Concomitant]
     Active Substance: PANTOPRAZOLE SODIUM
  8. HYSINGLA ER [Concomitant]
     Active Substance: HYDROCODONE BITARTRATE
  9. VENTOLIN [Concomitant]
     Active Substance: ALBUTEROL SULFATE
  10. ENALAPRIL [Concomitant]
     Active Substance: ENALAPRIL
  11. GABAPENTIN. [Concomitant]
     Active Substance: GABAPENTIN
  12. HYDROCHLOROT [Concomitant]
     Active Substance: HYDROCHLOROTHIAZIDE
  13. MONTELUSKAST [Concomitant]

REACTIONS (2)
  - Disease progression [None]
  - Neoplasm malignant [None]

NARRATIVE: CASE EVENT DATE: 201708
